FAERS Safety Report 5949455-1 (Version None)
Quarter: 2008Q4

REPORT INFORMATION
  Report Type: 
  Country: None (occurrence: None)
  Receive Date: 20081112
  Receipt Date: 20081103
  Transmission Date: 20090506
  Serious: Yes (Other)
  Sender: FDA-Public Use
  Company Number: PHHY2008FR27077

PATIENT
  Age: 35 Year
  Sex: Female

DRUGS (3)
  1. TEGRETOL [Suspect]
     Indication: BIPOLAR I DISORDER
     Dosage: 600 MG, QD
     Route: 048
     Dates: start: 20020101
  2. LEVONORGESTREL AND ETHINYL ESTRADIOL [Interacting]
     Indication: ORAL CONTRACEPTION
     Dosage: UNK
     Dates: start: 19980101, end: 20080801
  3. LEXOMIL [Concomitant]
     Dosage: 12 MG, TID

REACTIONS (4)
  - ABORTION SPONTANEOUS [None]
  - DRUG INTERACTION [None]
  - METRORRHAGIA [None]
  - PREGNANCY ON CONTRACEPTIVE [None]
